FAERS Safety Report 11303652 (Version 1)
Quarter: 2015Q3

REPORT INFORMATION
  Report Type: Spontaneous
  Country: US (occurrence: US)
  Receive Date: 20150723
  Receipt Date: 20150723
  Transmission Date: 20151125
  Serious: No
  Sender: FDA-Public Use
  Company Number: US-JNJFOC-20150602001

PATIENT
  Age: 66 Year
  Sex: Male
  Weight: 74.84 kg

DRUGS (3)
  1. ZYRTEC [Suspect]
     Active Substance: CETIRIZINE HYDROCHLORIDE
     Route: 048
  2. ZYRTEC [Suspect]
     Active Substance: CETIRIZINE HYDROCHLORIDE
     Indication: FOOD ALLERGY
     Route: 048
     Dates: start: 20150429, end: 20150429
  3. VITAMINS [Concomitant]
     Active Substance: VITAMINS
     Indication: PRODUCT USED FOR UNKNOWN INDICATION
     Dosage: ON A DAILY BASIS
     Route: 065

REACTIONS (4)
  - Therapeutic response unexpected [Unknown]
  - Confusional state [Recovering/Resolving]
  - Off label use [Unknown]
  - Somnolence [Recovering/Resolving]
